FAERS Safety Report 4998526-5 (Version None)
Quarter: 2006Q2

REPORT INFORMATION
  Report Type: 
  Country: None (occurrence: None)
  Receive Date: 20060508
  Receipt Date: 20060428
  Transmission Date: 20061013
  Serious: Yes (Other)
  Sender: FDA-Public Use
  Company Number: 110099ISR

PATIENT
  Age: 41 Year
  Sex: Female

DRUGS (2)
  1. GLATIRAMER ACETATE [Suspect]
     Indication: MULTIPLE SCLEROSIS
     Dosage: 20 MILLIGRAM SUBCUTANEOUS
     Route: 058
     Dates: start: 20020401
  2. PROPRANOLOL [Concomitant]

REACTIONS (5)
  - BLOOD CORTICOTROPHIN INCREASED [None]
  - BLOOD FOLLICLE STIMULATING HORMONE INCREASED [None]
  - BLOOD LUTEINISING HORMONE INCREASED [None]
  - HYPERTHYROIDISM [None]
  - MENOPAUSE [None]
